FAERS Safety Report 5621266-6 (Version None)
Quarter: 2008Q1

REPORT INFORMATION
  Report Type: 
  Country: None (occurrence: None)
  Receive Date: 20080211
  Receipt Date: 20080205
  Transmission Date: 20080703
  Serious: Yes (Hospitalization)
  Sender: FDA-Public Use
  Company Number: BR-TEVA-163842USA

PATIENT
  Sex: Male
  Weight: 105 kg

DRUGS (9)
  1. PIMOZIDE TABLETS [Suspect]
     Indication: DEPRESSION
     Route: 048
     Dates: start: 20050101
  2. PIMOZIDE TABLETS [Suspect]
     Indication: NERVOUS SYSTEM DISORDER
  3. CLONAZEPAM [Concomitant]
     Indication: NERVOUS SYSTEM DISORDER
     Route: 048
     Dates: start: 20050101
  4. LITHIUM CARBONATE [Concomitant]
     Indication: DEPRESSION
     Route: 048
     Dates: start: 20050101
  5. LITHIUM CARBONATE [Concomitant]
     Indication: NERVOUS SYSTEM DISORDER
  6. CARBAMAZEPINE [Concomitant]
  7. BIPERIDEN HYDROCHLORIDE TAB [Concomitant]
  8. HALOPERIDOL [Concomitant]
  9. RISPERIDONE [Concomitant]

REACTIONS (2)
  - ERECTILE DYSFUNCTION [None]
  - WEIGHT INCREASED [None]
